FAERS Safety Report 8234525-8 (Version None)
Quarter: 2012Q1

REPORT INFORMATION
  Report Type: 
  Country: None (occurrence: None)
  Receive Date: 20120322
  Receipt Date: 20120309
  Transmission Date: 20120608
  Serious: Yes (Hospitalization)
  Sender: FDA-Public Use
  Company Number: DSA_55680_2012

PATIENT
  Age: 59 Year
  Sex: Female

DRUGS (1)
  1. FLAGYL [Suspect]
     Indication: LOCALISED INFECTION
     Dosage: (1.2 G, PER DAY, FREQUENCY UNKNOWN ORAL)
     Route: 048
     Dates: start: 20111212, end: 20111214

REACTIONS (4)
  - DYSSTASIA [None]
  - FATIGUE [None]
  - CEREBELLAR SYNDROME [None]
  - CONFUSIONAL STATE [None]
